FAERS Safety Report 16958267 (Version 1)
Quarter: 2019Q4

REPORT INFORMATION
  Report Type: Spontaneous
  Country: SG (occurrence: SG)
  Receive Date: 20191024
  Receipt Date: 20191024
  Transmission Date: 20200122
  Serious: Yes (Other)
  Sender: FDA-Public Use
  Company Number: SG-FERRINGPH-2019FE06788

PATIENT

DRUGS (8)
  1. DESMOPRESSIN [Suspect]
     Active Substance: DESMOPRESSIN
     Dosage: 120 ?G MORNING, 60 ?G EVENING
     Route: 060
  2. SALINE                             /00075401/ [Suspect]
     Active Substance: SODIUM CHLORIDE
     Indication: DIABETES INSIPIDUS
     Dosage: 3.5-4 L, DAILY
     Route: 042
  3. DESMOPRESSIN [Suspect]
     Active Substance: DESMOPRESSIN
     Dosage: 0.25 ?G, UNK
     Route: 042
  4. DESMOPRESSIN [Suspect]
     Active Substance: DESMOPRESSIN
     Indication: DIABETES INSIPIDUS
     Dosage: 90 ?G MORNING, 75 ?G EVENING
     Route: 060
  5. DESMOPRESSIN [Suspect]
     Active Substance: DESMOPRESSIN
     Indication: DIABETES INSIPIDUS
     Dosage: 0.5 ?G IN THE MORNING AND 0.375 ?G AT NIGHT
     Route: 058
  6. DESMOPRESSIN [Suspect]
     Active Substance: DESMOPRESSIN
     Dosage: 0.25 ?G, 2 TIMES DAILY ON DAY 6
     Route: 042
  7. DESMOPRESSIN [Suspect]
     Active Substance: DESMOPRESSIN
     Dosage: 0.75 ?G, ON POSTOPERATIVE DAY 5
     Route: 042
  8. DESMOPRESSIN [Suspect]
     Active Substance: DESMOPRESSIN
     Dosage: 1 ?G, DAILY
     Route: 042

REACTIONS (5)
  - Contraindicated product administered [Unknown]
  - Hyponatraemia [Recovered/Resolved]
  - Wrong technique in product usage process [Unknown]
  - Pulmonary oedema [Recovered/Resolved]
  - Labelled drug-disease interaction medication error [Unknown]
